FAERS Safety Report 7218014-5 (Version None)
Quarter: 2011Q1

REPORT INFORMATION
  Report Type: 
  Country: None (occurrence: None)
  Receive Date: 20110110
  Receipt Date: 20110104
  Transmission Date: 20110831
  Serious: Yes (Death)
  Sender: FDA-Public Use
  Company Number: TW-BAXTER-2010BH030880

PATIENT
  Sex: Female

DRUGS (2)
  1. DIANEAL PD-2 W/ DEXTROSE 1.5% [Suspect]
     Indication: PERITONEAL DIALYSIS
     Route: 033
     Dates: start: 20010901
  2. EXTRANEAL [Suspect]
     Indication: PERITONEAL DIALYSIS
     Route: 033
     Dates: start: 20010901

REACTIONS (1)
  - SEPSIS [None]
